FAERS Safety Report 5176082-9 (Version None)
Quarter: 2006Q4

REPORT INFORMATION
  Report Type: 
  Country: None (occurrence: None)
  Receive Date: 20061215
  Receipt Date: 20060629
  Transmission Date: 20070319
  Serious: No
  Sender: FDA-Public Use
  Company Number: US-AMGEN-KDL184878

PATIENT
  Sex: Female

DRUGS (1)
  1. ENBREL [Suspect]
     Indication: RHEUMATOID ARTHRITIS
     Route: 058
     Dates: start: 20050708

REACTIONS (6)
  - CONDITION AGGRAVATED [None]
  - DYSURIA [None]
  - FUNGAL INFECTION [None]
  - GENITAL PRURITUS FEMALE [None]
  - MICTURITION URGENCY [None]
  - VAGINAL INFECTION [None]
